FAERS Safety Report 11081017 (Version 1)
Quarter: 2015Q2

REPORT INFORMATION
  Report Type: Spontaneous
  Country: US (occurrence: None)
  Receive Date: 20150430
  Receipt Date: 20150430
  Transmission Date: 20150821
  Serious: Yes (Hospitalization)
  Sender: FDA-Public Use
  Company Number: None

PATIENT
  Age: 75 Year
  Sex: Male
  Weight: 102 kg

DRUGS (1)
  1. DOXAZOSIN [Suspect]
     Active Substance: DOXAZOSIN\DOXAZOSIN MESYLATE
     Indication: HYPERTENSION
     Dosage: AT BEDTIME
     Route: 048
     Dates: start: 20150327, end: 20150331

REACTIONS (4)
  - Head injury [None]
  - Treatment noncompliance [None]
  - Fall [None]
  - Dizziness postural [None]

NARRATIVE: CASE EVENT DATE: 20150331
